FAERS Safety Report 16280223 (Version 1)
Quarter: 2019Q2

REPORT INFORMATION
  Report Type: Spontaneous
  Country: US (occurrence: US)
  Receive Date: 20190507
  Receipt Date: 20190507
  Transmission Date: 20190711
  Serious: Yes (Other)
  Sender: FDA-Public Use
  Company Number: US-GLAXOSMITHKLINE-US2019079070

PATIENT
  Age: 78 Year
  Sex: Female

DRUGS (1)
  1. ADVAIR HFA [Suspect]
     Active Substance: FLUTICASONE PROPIONATE\SALMETEROL XINAFOATE
     Indication: CHRONIC OBSTRUCTIVE PULMONARY DISEASE
     Dosage: UNK
     Route: 065

REACTIONS (9)
  - Sputum retention [Unknown]
  - Drug ineffective [Unknown]
  - Intracranial aneurysm [Unknown]
  - Pneumothorax [Unknown]
  - Lung carcinoma cell type unspecified stage IV [Not Recovered/Not Resolved]
  - Transient ischaemic attack [Unknown]
  - Pain [Unknown]
  - Throat cancer [Not Recovered/Not Resolved]
  - Insomnia [Unknown]

NARRATIVE: CASE EVENT DATE: 20190501
